FAERS Safety Report 13758812 (Version 3)
Quarter: 2017Q3

REPORT INFORMATION
  Report Type: Spontaneous
  Country: AU (occurrence: AU)
  Receive Date: 20170717
  Receipt Date: 20170811
  Transmission Date: 20171127
  Serious: Yes (Death)
  Sender: FDA-Public Use
  Company Number: PHHY2017AU104206

PATIENT
  Sex: Male

DRUGS (1)
  1. ENTRESTO [Suspect]
     Active Substance: SACUBITRIL\VALSARTAN
     Indication: CARDIAC FAILURE CONGESTIVE
     Dosage: 100 MG, BID
     Route: 048
     Dates: start: 20170328, end: 20170609

REACTIONS (3)
  - Haemorrhagic stroke [Fatal]
  - Rectal cancer metastatic [Fatal]
  - Iron deficiency anaemia [Fatal]
